FAERS Safety Report 13732475 (Version 1)
Quarter: 2017Q3

REPORT INFORMATION
  Report Type: Spontaneous
  Country: US (occurrence: US)
  Receive Date: 20170707
  Receipt Date: 20170707
  Transmission Date: 20171127
  Serious: No
  Sender: FDA-Public Use
  Company Number: US-SA-2017SA118903

PATIENT
  Age: 54 Year
  Sex: Female

DRUGS (2)
  1. DUPIXENT [Suspect]
     Active Substance: DUPILUMAB
     Route: 065
  2. KENALOG [Concomitant]
     Active Substance: TRIAMCINOLONE ACETONIDE
     Route: 030

REACTIONS (9)
  - Papule [Unknown]
  - Rash [Not Recovered/Not Resolved]
  - Dyspnoea [Unknown]
  - Swelling [Recovered/Resolved]
  - Pruritus [Recovering/Resolving]
  - Pharyngeal oedema [Recovered/Resolved]
  - Erythema [Unknown]
  - Paraesthesia [Unknown]
  - Skin warm [Unknown]
